FAERS Safety Report 12634036 (Version 1)
Quarter: 2016Q3

REPORT INFORMATION
  Report Type: Spontaneous
  Country: US (occurrence: US)
  Receive Date: 20160809
  Receipt Date: 20160809
  Transmission Date: 20161109
  Serious: Yes (Other)
  Sender: FDA-Public Use
  Company Number: US-GLAXOSMITHKLINE-US2016GSK114171

PATIENT
  Age: 57 Year
  Sex: Female

DRUGS (7)
  1. FYCOMPA [Suspect]
     Active Substance: PERAMPANEL
     Dosage: 6 MG, QD
     Route: 048
     Dates: start: 201601, end: 201601
  2. VIMPAT [Concomitant]
     Active Substance: LACOSAMIDE
     Dosage: UNK
  3. LAMICTAL [Suspect]
     Active Substance: LAMOTRIGINE
     Indication: PARTIAL SEIZURES
  4. FYCOMPA [Suspect]
     Active Substance: PERAMPANEL
     Indication: PARTIAL SEIZURES
     Dosage: 2 MG, QD
     Route: 048
  5. FYCOMPA [Suspect]
     Active Substance: PERAMPANEL
     Dosage: 4 MG, QD
     Route: 048
     Dates: start: 201601, end: 2016
  6. FYCOMPA [Suspect]
     Active Substance: PERAMPANEL
     Dosage: 8 MG, QD
     Route: 048
     Dates: start: 201601, end: 201604
  7. ONFI [Concomitant]
     Active Substance: CLOBAZAM
     Dosage: UNK

REACTIONS (8)
  - Seizure [Unknown]
  - Depressed mood [Recovered/Resolved]
  - Sluggishness [Recovered/Resolved]
  - Frustration tolerance decreased [Recovered/Resolved]
  - Intentional product use issue [Recovered/Resolved]
  - Tremor [Not Recovered/Not Resolved]
  - Fatigue [Recovered/Resolved]
  - Hunger [Recovered/Resolved]

NARRATIVE: CASE EVENT DATE: 201601
